FAERS Safety Report 5382435-6 (Version None)
Quarter: 2007Q2

REPORT INFORMATION
  Report Type: 
  Country: None (occurrence: None)
  Receive Date: 20070629
  Receipt Date: 20060918
  Transmission Date: 20071010
  Serious: Yes (Other)
  Sender: FDA-Public Use
  Company Number: 2006112188

PATIENT
  Age: 85 Year
  Sex: Female
  Weight: 45.8133 kg

DRUGS (3)
  1. ZOLOFT [Suspect]
     Indication: DEPRESSION
     Dosage: 25 MG (25 MG, 1 IN 1 D, 1 MONTH AGO
  2. NEURONTIN [Concomitant]
  3. AMBIEN [Concomitant]

REACTIONS (2)
  - DIVERTICULITIS [None]
  - POOR QUALITY SLEEP [None]
